FAERS Safety Report 14980476 (Version 1)
Quarter: 2018Q2

REPORT INFORMATION
  Report Type: Spontaneous
  Country: US (occurrence: US)
  Receive Date: 20180606
  Receipt Date: 20180606
  Transmission Date: 20180711
  Serious: Yes (Other)
  Sender: FDA-Public Use
  Company Number: US-BAYER-2018-102304

PATIENT
  Age: 19 Year
  Sex: Female

DRUGS (1)
  1. MIRENA [Suspect]
     Active Substance: LEVONORGESTREL
     Indication: CONTRACEPTION
     Dosage: DAILY DOSE 20 ?G
     Route: 015
     Dates: start: 201711

REACTIONS (5)
  - Genital haemorrhage [None]
  - Medical device discomfort [None]
  - Vaginal haemorrhage [None]
  - Abdominal pain lower [None]
  - Vaginal discharge [None]

NARRATIVE: CASE EVENT DATE: 20180526
